FAERS Safety Report 16305173 (Version 1)
Quarter: 2019Q2

REPORT INFORMATION
  Report Type: Spontaneous
  Country: US (occurrence: US)
  Receive Date: 20190510
  Receipt Date: 20190510
  Transmission Date: 20190711
  Serious: Yes (Other)
  Sender: FDA-Public Use
  Company Number: None

PATIENT
  Age: 59 Year
  Sex: Female
  Weight: 104.85 kg

DRUGS (3)
  1. SYNTHROID [Concomitant]
     Active Substance: LEVOTHYROXINE SODIUM
  2. TYLENOL EXTRA STRENGTH [Concomitant]
     Active Substance: ACETAMINOPHEN
  3. TELMISARTAN 80 [Suspect]
     Active Substance: TELMISARTAN
     Indication: HYPERTENSION
     Route: 048

REACTIONS (8)
  - Chest pain [None]
  - Neck pain [None]
  - Irritability [None]
  - Panic attack [None]
  - Hypokinesia [None]
  - Hot flush [None]
  - Pain [None]
  - Back pain [None]

NARRATIVE: CASE EVENT DATE: 20190510
